FAERS Safety Report 23290047 (Version 1)
Quarter: 2023Q4

REPORT INFORMATION
  Report Type: Spontaneous
  Country: BE (occurrence: BE)
  Receive Date: 20231212
  Receipt Date: 20231212
  Transmission Date: 20240109
  Serious: Yes (Disabling, Other)
  Sender: FDA-Public Use
  Company Number: None

PATIENT
  Age: 38 Year
  Sex: Female
  Weight: 71 kg

DRUGS (3)
  1. RILPIVIRINE [Suspect]
     Active Substance: RILPIVIRINE
     Indication: HIV infection
     Dosage: 1X PER 8WEKEN; TUSSEN 1E EN 2E TOEDIENING 4WEKEN
     Route: 030
     Dates: start: 20230407, end: 20230825
  2. CHOLECALCIFEROL [Concomitant]
     Active Substance: CHOLECALCIFEROL
  3. CABOTEGRAVIR [Concomitant]
     Active Substance: CABOTEGRAVIR

REACTIONS (5)
  - Injection site erythema [Recovered/Resolved]
  - Injection site pain [Recovered/Resolved]
  - Injection site warmth [Recovered/Resolved]
  - Injection site swelling [Recovered/Resolved]
  - Injection site abscess sterile [Recovered/Resolved]

NARRATIVE: CASE EVENT DATE: 20230523
